FAERS Safety Report 9890925 (Version 2)
Quarter: 2014Q1

REPORT INFORMATION
  Report Type: Spontaneous
  Country: US (occurrence: None)
  Receive Date: 20140207
  Receipt Date: 20140224
  Transmission Date: 20141002
  Serious: Yes (Death)
  Sender: FDA-Public Use
  Company Number: AUR-APL-2014-01148

PATIENT
  Age: 47 Year
  Sex: Male

DRUGS (4)
  1. VENLAFAXINE [Suspect]
     Indication: DEPRESSION
     Dosage: 1 IN 1D.
     Route: 048
     Dates: start: 20140117
  2. MULTIVITE (KAPSOVIT) [Concomitant]
  3. SIMVASTATIN (SIMVASTATIN) [Concomitant]
  4. METFORMIN (METFORMIN) [Concomitant]

REACTIONS (3)
  - Completed suicide [None]
  - Feeling abnormal [None]
  - Asphyxia [None]
